FAERS Safety Report 5477744-6 (Version None)
Quarter: 2007Q4

REPORT INFORMATION
  Report Type: 
  Country: None (occurrence: None)
  Receive Date: 20071002
  Receipt Date: 20071002
  Transmission Date: 20080405
  Serious: Yes (Life-Threatening, Hospitalization)
  Sender: FDA-Public Use
  Company Number: None

PATIENT
  Sex: Male
  Weight: 83.4619 kg

DRUGS (2)
  1. ERBITUX [Suspect]
     Indication: COLON CANCER METASTATIC
     Dosage: 800 MG WEEKLY IV DRIP PT ONLY RECEIVED ONE DOSE
     Route: 041
  2. ERBITUX [Suspect]

REACTIONS (2)
  - RESUSCITATION [None]
  - UNRESPONSIVE TO STIMULI [None]
